FAERS Safety Report 25604086 (Version 1)
Quarter: 2025Q3

REPORT INFORMATION
  Report Type: Spontaneous
  Country: US (occurrence: US)
  Receive Date: 20250725
  Receipt Date: 20250725
  Transmission Date: 20251021
  Serious: Yes (Life-Threatening, Hospitalization, Other)
  Sender: TWI PHARMACEUTICALS
  Company Number: US-TWI PHARMACEUTICAL, INC-20250701018

PATIENT
  Age: 21 Year
  Sex: Male

DRUGS (4)
  1. LISINOPRIL [Suspect]
     Active Substance: LISINOPRIL
     Indication: Product used for unknown indication
     Route: 048
  2. AMLODIPINE BESYLATE [Suspect]
     Active Substance: AMLODIPINE BESYLATE
     Indication: Product used for unknown indication
     Route: 048
  3. SERTRALINE [Suspect]
     Active Substance: SERTRALINE HYDROCHLORIDE
     Indication: Product used for unknown indication
     Route: 065
  4. TAMSULOSIN [Suspect]
     Active Substance: TAMSULOSIN
     Indication: Product used for unknown indication
     Route: 065

REACTIONS (8)
  - Distributive shock [Recovering/Resolving]
  - Respiratory failure [Recovering/Resolving]
  - Serotonin syndrome [Recovering/Resolving]
  - Suicide attempt [Recovering/Resolving]
  - Intentional overdose [Unknown]
  - Acute kidney injury [Recovering/Resolving]
  - Pneumonia [Recovering/Resolving]
  - Ileus [Recovering/Resolving]
